FAERS Safety Report 10403193 (Version 1)
Quarter: 2014Q3

REPORT INFORMATION
  Report Type: Spontaneous
  Country: CA (occurrence: CA)
  Receive Date: 20140822
  Receipt Date: 20140822
  Transmission Date: 20150326
  Serious: Yes (Other)
  Sender: FDA-Public Use
  Company Number: CA-ACTAVIS-2014-18660

PATIENT
  Age: 60 Year
  Sex: Female
  Weight: 100 kg

DRUGS (1)
  1. QUETIAPINE FUMARATE. [Suspect]
     Active Substance: QUETIAPINE FUMARATE
     Indication: PRODUCT USED FOR UNKNOWN INDICATION
     Dosage: 200 MG, 2 EVERY 1 DAY(S)
     Route: 048

REACTIONS (10)
  - Crying [Unknown]
  - Headache [Unknown]
  - Irritability [Unknown]
  - Hyperacusis [Unknown]
  - Product quality issue [Unknown]
  - Mood swings [Unknown]
  - Agitation [Unknown]
  - Suicidal ideation [Unknown]
  - Anger [Unknown]
  - Feeling abnormal [Unknown]
